FAERS Safety Report 8890575 (Version 2)
Quarter: 2012Q4

REPORT INFORMATION
  Report Type: 
  Country: IN (occurrence: IN)
  Receive Date: 20121106
  Receipt Date: 20121130
  Transmission Date: 20130627
  Serious: Yes (Other)
  Sender: FDA-Public Use
  Company Number: IN-WATSON-2012-18637

PATIENT
  Age: 10 Year
  Sex: Male

DRUGS (2)
  1. CLONAZEPAM [Suspect]
     Indication: SLEEP DISORDER
     Dosage: 0.5 mg, qhs
     Route: 065
  2. CLONAZEPAM [Suspect]
     Indication: ANXIETY

REACTIONS (2)
  - Exfoliative rash [Recovered/Resolved]
  - Paraesthesia [Recovered/Resolved]
